FAERS Safety Report 10184755 (Version 1)
Quarter: 2014Q2

REPORT INFORMATION
  Report Type: Spontaneous
  Country: DE (occurrence: DE)
  Receive Date: 20140521
  Receipt Date: 20140521
  Transmission Date: 20141212
  Serious: Yes (Other)
  Sender: FDA-Public Use
  Company Number: PHHY2014DE061051

PATIENT
  Sex: Male

DRUGS (5)
  1. AFINITOR [Suspect]
     Indication: METASTATIC RENAL CELL CARCINOMA
     Dosage: 2.5 MG, QD
     Dates: start: 201312
  2. AFINITOR [Suspect]
     Dosage: 5 MG, QD
  3. AFINITOR [Suspect]
     Dosage: 7.5 MG, QD
  4. AFINITOR [Suspect]
     Dosage: 10 MG, QD
     Dates: start: 20140306
  5. BECLOMETASONE DIPROPIONATE /FORMOTEROL HFA-PMD-INHALER [Concomitant]

REACTIONS (2)
  - Dyspnoea exertional [Unknown]
  - Decreased appetite [Unknown]
